FAERS Safety Report 21913814 (Version 1)
Quarter: 2023Q1

REPORT INFORMATION
  Report Type: Spontaneous
  Country: US (occurrence: US)
  Receive Date: 20230125
  Receipt Date: 20230125
  Transmission Date: 20230418
  Serious: No
  Sender: FDA-Public Use
  Company Number: US-ALKERMES INC.-ALK-2023-000304

PATIENT

DRUGS (1)
  1. ARISTADA [Suspect]
     Active Substance: ARIPIPRAZOLE LAUROXIL
     Indication: Product used for unknown indication
     Dosage: 1064 MILLIGRAM
     Route: 030

REACTIONS (5)
  - Nausea [Unknown]
  - Injection site mass [Unknown]
  - Injection site erythema [Unknown]
  - Injection site warmth [Unknown]
  - Headache [Unknown]
